FAERS Safety Report 13633280 (Version 1)
Quarter: 2017Q2

REPORT INFORMATION
  Report Type: Spontaneous
  Country: US (occurrence: US)
  Receive Date: 20170531
  Receipt Date: 20170531
  Transmission Date: 20170830
  Serious: No
  Sender: FDA-Public Use
  Company Number: US-ASTELLAS-1523613

PATIENT
  Sex: Female

DRUGS (5)
  1. TARCEVA [Suspect]
     Active Substance: ERLOTINIB HYDROCHLORIDE
     Route: 048
  2. GABAPENTIN. [Concomitant]
     Active Substance: GABAPENTIN
  3. TARCEVA [Suspect]
     Active Substance: ERLOTINIB HYDROCHLORIDE
     Indication: LUNG NEOPLASM MALIGNANT
     Route: 048
     Dates: start: 20141227
  4. TRAZODONE [Concomitant]
     Active Substance: TRAZODONE HYDROCHLORIDE
  5. OXYCODONE [Concomitant]
     Active Substance: OXYCODONE

REACTIONS (13)
  - Diarrhoea [Unknown]
  - Hair growth abnormal [Not Recovered/Not Resolved]
  - Dry skin [Not Recovered/Not Resolved]
  - Vulval disorder [Unknown]
  - Weight decreased [Unknown]
  - Eye disorder [Unknown]
  - Dermatitis acneiform [Recovered/Resolved]
  - Dysuria [Recovered/Resolved]
  - Rash [Unknown]
  - Pruritus [Unknown]
  - Dyspareunia [Not Recovered/Not Resolved]
  - Hyperaesthesia [Unknown]
  - Fatigue [Unknown]
